FAERS Safety Report 9334950 (Version 1)
Quarter: 2013Q2

REPORT INFORMATION
  Report Type: Spontaneous
  Country: US (occurrence: US)
  Receive Date: 20130606
  Receipt Date: 20130606
  Transmission Date: 20140414
  Serious: No
  Sender: FDA-Public Use
  Company Number: US-AMGEN-USASP2013008962

PATIENT
  Age: 78 Year
  Sex: Female

DRUGS (6)
  1. PROLIA [Suspect]
     Indication: OSTEOPOROSIS POSTMENOPAUSAL
     Dosage: UNK UNK, Q6MO
     Dates: start: 201207
  2. ATENOLOL [Concomitant]
     Dosage: UNK
  3. VITAMINS /90003601/ [Concomitant]
     Dosage: UNK
  4. CALCIUM [Concomitant]
  5. VITAMIN D                          /00107901/ [Concomitant]
  6. HYDROCODONE [Concomitant]

REACTIONS (10)
  - Visual acuity reduced [Unknown]
  - Rosacea [Recovered/Resolved]
  - Hiatus hernia [Unknown]
  - Eructation [Unknown]
  - Tooth infection [Unknown]
  - Bone deformity [Unknown]
  - Waist circumference increased [Unknown]
  - Skin papilloma [Unknown]
  - Toothache [Unknown]
  - Flatulence [Unknown]
